FAERS Safety Report 5126892-9 (Version None)
Quarter: 2006Q4

REPORT INFORMATION
  Report Type: 
  Country: None (occurrence: None)
  Receive Date: 20061011
  Receipt Date: 20061011
  Transmission Date: 20070319
  Serious: No
  Sender: FDA-Public Use
  Company Number: None

PATIENT
  Age: 26 Year
  Sex: Male

DRUGS (1)
  1. VANCOMYCIN [Suspect]
     Indication: INFECTION
     Dosage: 1000 MG Q12H IV
     Route: 042
     Dates: start: 20060223, end: 20060320

REACTIONS (3)
  - EYE PRURITUS [None]
  - PRURITUS [None]
  - RASH MACULAR [None]
